FAERS Safety Report 16425172 (Version 4)
Quarter: 2019Q3

REPORT INFORMATION
  Report Type: Spontaneous
  Country: PL (occurrence: PL)
  Receive Date: 20190613
  Receipt Date: 20190927
  Transmission Date: 20191004
  Serious: Yes (Hospitalization, Other)
  Sender: FDA-Public Use
  Company Number: PL-009507513-1906POL004328

PATIENT
  Age: 34 Year
  Sex: Female

DRUGS (14)
  1. PREDNISONE. [Suspect]
     Active Substance: PREDNISONE
     Indication: CONTROLLED OVARIAN STIMULATION
     Dosage: UNK
  2. FOLIC ACID. [Suspect]
     Active Substance: FOLIC ACID
     Indication: CONTROLLED OVARIAN STIMULATION
     Dosage: UNK
  3. L-THYROXIN [Concomitant]
     Active Substance: LEVOTHYROXINE SODIUM
     Indication: HYPOTHYROIDISM
  4. ENOXAPARIN SODIUM. [Suspect]
     Active Substance: ENOXAPARIN SODIUM
     Indication: CONTROLLED OVARIAN STIMULATION
     Dosage: UNK
  5. ACETIC ACID. [Suspect]
     Active Substance: ACETIC ACID
     Indication: CONTROLLED OVARIAN STIMULATION
     Dosage: UNK
  6. ALBUMIN HUMAN [Suspect]
     Active Substance: ALBUMIN HUMAN
     Dosage: UNK
  7. PROGESTERONE. [Suspect]
     Active Substance: PROGESTERONE
     Dosage: UNK
     Route: 067
  8. GONADOTROPIN, CHORIONIC [Suspect]
     Active Substance: CHORIOGONADOTROPIN ALFA
     Indication: OOCYTE HARVEST
     Dosage: 125 MCG PREPARATION
  9. GONADOTROPIN, CHORIONIC [Suspect]
     Active Substance: CHORIOGONADOTROPIN ALFA
     Dosage: UNSPECIFIED REDUCTION OF THE RHCG DOSEUNK
  10. FOLLITROPIN BETA [Suspect]
     Active Substance: FOLLITROPIN
     Indication: OVULATION INDUCTION
     Dosage: 1075 IU, DAILY
  11. TRIPTORELIN [Suspect]
     Active Substance: TRIPTORELIN
     Indication: OVULATION INDUCTION
     Dosage: DAILY DOSE OF 0.1 MG
  12. ENOXAPARIN SODIUM. [Concomitant]
     Active Substance: ENOXAPARIN SODIUM
     Indication: CONTROLLED OVARIAN STIMULATION
  13. HETASTARCH. [Suspect]
     Active Substance: HETASTARCH
     Dosage: UNK
  14. CABERGOLINE. [Suspect]
     Active Substance: CABERGOLINE
     Indication: PROPHYLAXIS
     Dosage: 0.5 MILLIGRAM, QD

REACTIONS (2)
  - Ovarian hyperstimulation syndrome [Recovered/Resolved]
  - Maternal exposure before pregnancy [Recovered/Resolved]
